FAERS Safety Report 12559374 (Version 1)
Quarter: 2016Q3

REPORT INFORMATION
  Report Type: Spontaneous
  Country: US (occurrence: US)
  Receive Date: 20160715
  Receipt Date: 20160715
  Transmission Date: 20161109
  Serious: No
  Sender: FDA-Public Use
  Company Number: US-PAR PHARMACEUTICAL, INC-2016SCPR015486

PATIENT

DRUGS (3)
  1. CLONIDINE. [Suspect]
     Active Substance: CLONIDINE
     Indication: ATTENTION DEFICIT/HYPERACTIVITY DISORDER
     Dosage: 1 DF, HS
     Route: 048
     Dates: start: 201501
  2. CLONIDINE. [Suspect]
     Active Substance: CLONIDINE
     Dosage: 1 DF, HS
     Route: 048
     Dates: start: 20160521
  3. CLONIDINE. [Suspect]
     Active Substance: CLONIDINE
     Indication: AUTISM
     Dosage: 1 DF, HS
     Route: 048
     Dates: start: 20160328, end: 20160520

REACTIONS (2)
  - Drug ineffective [Not Recovered/Not Resolved]
  - Product quality issue [Unknown]

NARRATIVE: CASE EVENT DATE: 20160521
